FAERS Safety Report 6100612-3 (Version None)
Quarter: 2009Q1

REPORT INFORMATION
  Report Type: 
  Country: None (occurrence: None)
  Receive Date: 20090303
  Receipt Date: 20090220
  Transmission Date: 20090719
  Serious: Yes (Death)
  Sender: FDA-Public Use
  Company Number: DE-BAXTER-2009BH002785

PATIENT
  Age: 31 Year
  Sex: Male
  Weight: 78 kg

DRUGS (7)
  1. ENDOXAN BAXTER [Suspect]
     Indication: HODGKIN'S DISEASE
     Route: 065
     Dates: start: 20090120, end: 20090120
  2. VINCRISTINE SULFATE [Suspect]
     Indication: HODGKIN'S DISEASE
     Route: 065
     Dates: start: 20090127, end: 20090127
  3. ETOPOPHOS PRESERVATIVE FREE [Suspect]
     Indication: HODGKIN'S DISEASE
     Route: 065
     Dates: start: 20090120, end: 20090122
  4. ADRIBLASTIN [Suspect]
     Indication: HODGKIN'S DISEASE
     Route: 065
     Dates: start: 20090120, end: 20090120
  5. BLEOMYCIN SULFATE GENERIC [Suspect]
     Indication: HODGKIN'S DISEASE
     Route: 065
     Dates: start: 20090127, end: 20090127
  6. NATULAN [Suspect]
     Indication: HODGKIN'S DISEASE
     Route: 065
     Dates: start: 20090120, end: 20090126
  7. PREDNISONE [Suspect]
     Indication: HODGKIN'S DISEASE
     Route: 065
     Dates: start: 20090120, end: 20090120

REACTIONS (3)
  - DYSPNOEA [None]
  - PNEUMONIA PNEUMOCOCCAL [None]
  - SEPTIC SHOCK [None]
